FAERS Safety Report 9454528 (Version 2)
Quarter: 2013Q3

REPORT INFORMATION
  Report Type: Spontaneous
  Country: US (occurrence: None)
  Receive Date: 20130808
  Receipt Date: 20130820
  Transmission Date: 20140515
  Serious: Yes (Other)
  Sender: FDA-Public Use
  Company Number: 2013SA078725

PATIENT
  Sex: Male

DRUGS (1)
  1. GOLD BOND [Suspect]
     Dates: start: 20130801, end: 20130801

REACTIONS (2)
  - Pain in extremity [None]
  - Application site abscess [None]
